FAERS Safety Report 6269761-3 (Version None)
Quarter: 2009Q3

REPORT INFORMATION
  Report Type: 
  Country: None (occurrence: None)
  Receive Date: 20090714
  Receipt Date: 20090629
  Transmission Date: 20100115
  Serious: Yes (Hospitalization)
  Sender: FDA-Public Use
  Company Number: 8048453

PATIENT
  Sex: Male

DRUGS (1)
  1. CIMZIA [Suspect]
     Dates: start: 20090606

REACTIONS (1)
  - INFECTION [None]
